FAERS Safety Report 8971255 (Version 3)
Quarter: 2013Q1

REPORT INFORMATION
  Report Type: Spontaneous
  Country: US (occurrence: US)
  Receive Date: 20121218
  Receipt Date: 20130103
  Transmission Date: 20140127
  Serious: Yes (Hospitalization, Other)
  Sender: FDA-Public Use
  Company Number: US-PFIZER INC-2012313156

PATIENT
  Age: 41 Year
  Sex: Female
  Weight: 45 kg

DRUGS (12)
  1. ONDANSETRON [Suspect]
     Indication: NAUSEA
     Dosage: 8 MG, 2X/DAY
     Route: 042
  2. ONDANSETRON [Suspect]
     Indication: VOMITING
     Dosage: UNK
     Route: 042
  3. METOCLOPRAMIDE HCL [Suspect]
     Indication: NAUSEA
     Dosage: 10 MG, 3X/DAY
     Route: 065
  4. METOCLOPRAMIDE HCL [Suspect]
     Indication: VOMITING
  5. PROMETHAZINE [Suspect]
     Indication: NAUSEA
     Dosage: 12.5 TO 25 MG, UP TO 3 TIMES DAILY
     Route: 048
  6. PROMETHAZINE [Suspect]
     Indication: VOMITING
     Dosage: UNK
     Route: 042
  7. PROCHLORPERAZINE [Suspect]
     Dosage: UNK
     Route: 065
  8. ERYTHROMYCIN [Suspect]
     Dosage: UNK
     Route: 065
  9. DONNATAL [Concomitant]
     Indication: PRODUCT USED FOR UNKNOWN INDICATION
     Dosage: 1 DF, 2X/DAY
     Route: 048
  10. LOPERAMIDE [Concomitant]
     Indication: DIARRHOEA
     Dosage: 2 MG, AS NEEDED
     Route: 048
  11. OMEPRAZOLE [Concomitant]
     Indication: PRODUCT USED FOR UNKNOWN INDICATION
     Dosage: 20 MG,1 D
     Route: 065
  12. SUCRALFATE [Concomitant]
     Indication: PRODUCT USED FOR UNKNOWN INDICATION
     Dosage: 1 G, 3X/DAY
     Route: 065

REACTIONS (8)
  - Dehydration [Recovering/Resolving]
  - Malnutrition [Recovering/Resolving]
  - Somnolence [Unknown]
  - Dyskinesia [Unknown]
  - Diarrhoea [Recovering/Resolving]
  - Drug ineffective [Unknown]
  - Drug ineffective [Unknown]
  - Drug intolerance [Unknown]
